FAERS Safety Report 4995587-4 (Version None)
Quarter: 2006Q2

REPORT INFORMATION
  Report Type: 
  Country: None (occurrence: None)
  Receive Date: 20060508
  Receipt Date: 20060427
  Transmission Date: 20061013
  Serious: Yes (Hospitalization)
  Sender: FDA-Public Use
  Company Number: US-ROCHE-446344

PATIENT
  Age: 61 Year
  Sex: Female
  Weight: 44.9 kg

DRUGS (4)
  1. BONIVA [Suspect]
     Indication: OSTEOPOROSIS
     Route: 048
     Dates: start: 20060301, end: 20060401
  2. NORVASC [Concomitant]
     Indication: HYPERTENSION
     Route: 048
  3. GLUCOSAMINE SULFATE/CHONDROITIN [Concomitant]
     Indication: OSTEOARTHRITIS
     Route: 048
  4. CALCIUM/VITAMIN D [Concomitant]
     Route: 048

REACTIONS (1)
  - COLITIS ISCHAEMIC [None]
